FAERS Safety Report 18300380 (Version 2)
Quarter: 2021Q1

REPORT INFORMATION
  Report Type: Report from Study
  Country: NL (occurrence: NL)
  Receive Date: 20200923
  Receipt Date: 20210319
  Transmission Date: 20210419
  Serious: Yes (Other)
  Sender: FDA-Public Use
  Company Number: NVSC2020NL256446

PATIENT
  Age: 42 Year
  Sex: Female

DRUGS (3)
  1. GILENYA [Suspect]
     Active Substance: FINGOLIMOD HYDROCHLORIDE
     Dosage: 1 DF, TID
     Route: 065
  2. GILENYA [Suspect]
     Active Substance: FINGOLIMOD HYDROCHLORIDE
     Dosage: 3 DF, QW
     Route: 065
  3. GILENYA [Suspect]
     Active Substance: FINGOLIMOD HYDROCHLORIDE
     Indication: MULTIPLE SCLEROSIS
     Dosage: 1 DF, QD
     Route: 048

REACTIONS (6)
  - Premenstrual headache [Unknown]
  - Adverse drug reaction [Not Recovered/Not Resolved]
  - Premenstrual pain [Unknown]
  - Vaginal haemorrhage [Unknown]
  - Off label use [Not Recovered/Not Resolved]
  - Lymphocyte count abnormal [Unknown]

NARRATIVE: CASE EVENT DATE: 20200701
